FAERS Safety Report 8369081-7 (Version None)
Quarter: 2012Q2

REPORT INFORMATION
  Report Type: 
  Country: None (occurrence: None)
  Receive Date: 20120518
  Receipt Date: 20120504
  Transmission Date: 20120825
  Serious: Yes (Other)
  Sender: FDA-Public Use
  Company Number: DE-JNJFOC-20120506289

PATIENT

DRUGS (9)
  1. PREDNISONE [Suspect]
     Indication: HODGKIN'S DISEASE
     Route: 065
  2. DACARBAZINE [Suspect]
     Indication: HODGKIN'S DISEASE
     Route: 065
  3. ETOPOSIDE [Suspect]
     Indication: HODGKIN'S DISEASE
     Route: 065
  4. BLEOMYCIN SULFATE [Suspect]
     Indication: HODGKIN'S DISEASE
     Route: 065
  5. VINCRISTINE [Suspect]
     Indication: HODGKIN'S DISEASE
     Route: 065
  6. PROCARBAZINE HYDROCHLORIDE [Suspect]
     Indication: HODGKIN'S DISEASE
     Route: 065
  7. DOXORUBICIN HCL [Suspect]
     Indication: HODGKIN'S DISEASE
     Route: 042
  8. CYCLOPHOSPHAMIDE [Suspect]
     Indication: HODGKIN'S DISEASE
     Route: 065
  9. VINBLASTINE SULFATE [Suspect]
     Indication: HODGKIN'S DISEASE
     Route: 065

REACTIONS (3)
  - HYPOGONADISM [None]
  - MENOPAUSAL SYMPTOMS [None]
  - ANDROGENS ABNORMAL [None]
